FAERS Safety Report 19440997 (Version 1)
Quarter: 2021Q2

REPORT INFORMATION
  Report Type: Spontaneous
  Country: US (occurrence: US)
  Receive Date: 20210621
  Receipt Date: 20210621
  Transmission Date: 20210717
  Serious: Yes (Hospitalization, Other)
  Sender: FDA-Public Use
  Company Number: US-CIPLA LTD.-2021US04179

PATIENT

DRUGS (4)
  1. ARIPIPRAZOLE. [Suspect]
     Active Substance: ARIPIPRAZOLE
     Dosage: 10 MG/D, RE?STARTED
     Route: 065
  2. SERTRALINE [Suspect]
     Active Substance: SERTRALINE HYDROCHLORIDE
     Indication: BIPOLAR II DISORDER
     Dosage: 100 MG/D, SELF DISCONTINUED
     Route: 065
  3. ARIPIPRAZOLE. [Suspect]
     Active Substance: ARIPIPRAZOLE
     Indication: BIPOLAR II DISORDER
     Dosage: 10 MG/D, SELF?DISCONTINUED
     Route: 065
  4. SERTRALINE [Suspect]
     Active Substance: SERTRALINE HYDROCHLORIDE
     Dosage: 100 MG/D, RE?STARTED REGIMEN
     Route: 065

REACTIONS (11)
  - Hypotension [Recovered/Resolved]
  - Syncope [Recovered/Resolved]
  - Vomiting [Recovered/Resolved]
  - Somnolence [Recovered/Resolved]
  - Therapy cessation [Unknown]
  - Head injury [Unknown]
  - Dizziness [Unknown]
  - Loss of consciousness [Unknown]
  - Sinus bradycardia [Recovered/Resolved]
  - Fall [Unknown]
  - Treatment noncompliance [Unknown]
